FAERS Safety Report 21196656 (Version 1)
Quarter: 2022Q3

REPORT INFORMATION
  Report Type: Report from Study
  Country: AU (occurrence: AU)
  Receive Date: 20220810
  Receipt Date: 20220810
  Transmission Date: 20221027
  Serious: Yes (Life-Threatening, Hospitalization, Other)
  Sender: FDA-Public Use
  Company Number: AU-JAZZ-2021-AU-022796

PATIENT
  Age: 17 Year
  Sex: Male

DRUGS (2)
  1. VYXEOS [Suspect]
     Active Substance: CYTARABINE\DAUNORUBICIN
     Indication: Acute myeloid leukaemia
     Dosage: UNK
     Route: 042
     Dates: start: 20211115, end: 20211229
  2. VYXEOS [Suspect]
     Active Substance: CYTARABINE\DAUNORUBICIN
     Dosage: 6 VIALS; D1,3,5
     Route: 042
     Dates: start: 20211126, end: 20211130

REACTIONS (5)
  - Acute myeloid leukaemia refractory [Not Recovered/Not Resolved]
  - Febrile neutropenia [Recovered/Resolved]
  - Thrombocytopenia [Not Recovered/Not Resolved]
  - Anaemia [Not Recovered/Not Resolved]
  - Bone marrow failure [Unknown]

NARRATIVE: CASE EVENT DATE: 20211207
